FAERS Safety Report 15393866 (Version 2)
Quarter: 2018Q4

REPORT INFORMATION
  Report Type: Spontaneous
  Country: JP (occurrence: JP)
  Receive Date: 20180917
  Receipt Date: 20181004
  Transmission Date: 20190204
  Serious: Yes (Hospitalization)
  Sender: FDA-Public Use
  Company Number: JP-ALLERGAN-1845017US

PATIENT
  Age: 62 Year
  Sex: Male
  Weight: 70 kg

DRUGS (39)
  1. SODIUM HYALURONATE [Concomitant]
     Active Substance: HYALURONATE SODIUM
     Dosage: 25 ML, QD
     Route: 014
     Dates: start: 20180905, end: 20180905
  2. MIYA-BM [Concomitant]
     Active Substance: CLOSTRIDIUM BUTYRICUM SPORES STRAIN M-55
     Indication: GASTROINTESTINAL DISORDER
     Dosage: 20 MG, TID
     Route: 048
  3. OMEGA-3-ACID ETHYL ESTER [Concomitant]
     Active Substance: OMEGA-3-ACID ETHYL ESTERS
     Indication: HYPERLIPIDAEMIA
     Dosage: 2 G, QD
     Route: 048
     Dates: end: 20180731
  4. PROPETO [Concomitant]
     Indication: DRY SKIN PROPHYLAXIS
     Dosage: UNK UNK, PRN
     Route: 061
  5. HERBAL NOS [Concomitant]
     Active Substance: HERBALS
     Indication: GASTROOESOPHAGEAL REFLUX DISEASE
     Dosage: 2.5 G, TID
     Route: 048
  6. URSODEOXYCHOLIC ACID - BP [Suspect]
     Active Substance: URSODIOL
     Indication: CHOLECYSTECTOMY
     Dosage: 100 MG, TID
     Route: 048
  7. LAMOTRIGINE. [Concomitant]
     Active Substance: LAMOTRIGINE
     Dosage: 50 MG, QD
     Route: 048
     Dates: start: 20180515, end: 20180611
  8. SODIUM HYALURONATE [Concomitant]
     Active Substance: HYALURONATE SODIUM
     Indication: OSTEOARTHRITIS
     Dosage: 25 ML, QD
     Route: 014
     Dates: start: 20180508, end: 20180508
  9. TOCOPHERYL NICOTINATE [Concomitant]
     Active Substance: TOCOPHERYL NICOTINATE, D-.ALPHA.
     Indication: VARICOSE VEIN
     Dosage: 200 MG, BID
     Route: 048
     Dates: start: 20180621
  10. DEXALTIN [Concomitant]
     Active Substance: DEXAMETHASONE
     Indication: STOMATITIS
     Dosage: UNK UNK, TID
     Route: 061
     Dates: start: 20180816, end: 20180821
  11. DIQUAFOSOL TETRASODIUM [Concomitant]
     Active Substance: DIQUAFOSOL TETRASODIUM
     Indication: SJOGREN^S SYNDROME
     Dosage: 1 GTT, QID
     Route: 031
  12. CLONAZEPAM. [Concomitant]
     Active Substance: CLONAZEPAM
     Indication: DYSKINESIA
     Dosage: 0.4 MG, QD
     Route: 048
     Dates: start: 20180213
  13. BAKUMONDOTO [Concomitant]
     Active Substance: HERBALS
     Indication: SJOGREN^S SYNDROME
     Dosage: 3 G, TID
     Route: 048
     Dates: start: 20180621, end: 20180719
  14. MOSAPRIDE CITRATE [Concomitant]
     Active Substance: MOSAPRIDE CITRATE
     Indication: DYSPEPSIA
     Dosage: 5 MG, TID
     Route: 048
  15. OLOPATADINE HYDROCHLORIDE. [Concomitant]
     Active Substance: OLOPATADINE HYDROCHLORIDE
     Indication: CONJUNCTIVITIS ALLERGIC
     Dosage: 1 GTT, QID
     Route: 031
  16. BROTIZOLAM [Suspect]
     Active Substance: BROTIZOLAM
     Indication: INSOMNIA
     Dosage: 0.25 MG, QD
     Route: 048
  17. SODIUM HYALURONATE [Concomitant]
     Active Substance: HYALURONATE SODIUM
     Dosage: 25 ML, QD
     Route: 014
     Dates: start: 20180807, end: 20180807
  18. FEXOFENADINE HYDROCHLORIDE. [Concomitant]
     Active Substance: FEXOFENADINE HYDROCHLORIDE
     Indication: ECZEMA
     Dosage: 60 MG, BID
     Route: 048
     Dates: start: 20180810
  19. BIOSMIN [Concomitant]
     Indication: GASTROINTESTINAL DISORDER
     Dosage: 1 G, QD
     Route: 048
  20. HEPARINOID [Concomitant]
     Active Substance: CHONDROITIN SULFATE (BOVINE)
     Indication: SJOGREN^S SYNDROME
     Dosage: UNK UNK, QD
     Route: 061
  21. LAMOTRIGINE. [Concomitant]
     Active Substance: LAMOTRIGINE
     Dosage: 75 MG, QD
     Route: 048
     Dates: start: 20180612
  22. FLUOROMETHOLONE. [Concomitant]
     Active Substance: FLUOROMETHOLONE
     Indication: CONJUNCTIVITIS ALLERGIC
     Dosage: UNK UNK, PRN
     Route: 031
     Dates: start: 20180418
  23. BIOFERMIN [Concomitant]
     Active Substance: BACILLUS SUBTILIS\LACTOBACILLUS ACIDOPHILUS\STREPTOCOCCUS FAECAIS
     Indication: GASTROINTESTINAL DISORDER
     Dosage: 1 DF, TID
     Route: 048
  24. ESOMEPRAZOLE MAGNESIUM. [Concomitant]
     Active Substance: ESOMEPRAZOLE MAGNESIUM
     Indication: GASTROOESOPHAGEAL REFLUX DISEASE
     Dosage: 20 MG, QD
     Route: 048
  25. DIFLUPREDNATE [Concomitant]
     Active Substance: DIFLUPREDNATE
     Indication: ECZEMA
     Dosage: UNK UNK, BID
     Route: 061
  26. LOPERAMIDE HYDROCHLORIDE. [Concomitant]
     Active Substance: LOPERAMIDE HYDROCHLORIDE
     Indication: IRRITABLE BOWEL SYNDROME
     Dosage: 3 MG, PRN
     Route: 048
  27. QUETIAPINE FUMARATE. [Concomitant]
     Active Substance: QUETIAPINE FUMARATE
     Indication: INSOMNIA
     Dosage: 0.02 G, PRN
     Route: 048
  28. FASINUMAB [Suspect]
     Active Substance: FASINUMAB
     Indication: OSTEOARTHRITIS
     Dosage: A TOTAL OF 4 DOSES WITH INTERVAL OF 4 WEEKS
     Route: 058
     Dates: start: 20180116, end: 20180417
  29. ALLOPURINOL. [Concomitant]
     Active Substance: ALLOPURINOL
     Indication: HYPERURICAEMIA
     Dosage: 100 MG, QD
     Route: 048
     Dates: start: 20180123
  30. AROTINOLOL HYDROCHLORIDE [Concomitant]
     Active Substance: AROTINOLOL HYDROCHLORIDE
     Indication: ESSENTIAL TREMOR
     Dosage: 10 MG, QD
     Route: 048
  31. OLOPATADINE HYDROCHLORIDE. [Concomitant]
     Active Substance: OLOPATADINE HYDROCHLORIDE
     Indication: RHINITIS ALLERGIC
     Dosage: 5 MG, PRN
     Route: 048
  32. LAMOTRIGINE. [Concomitant]
     Active Substance: LAMOTRIGINE
     Indication: BIPOLAR DISORDER
     Dosage: 25 MG, QD
     Route: 048
     Dates: start: 20180418, end: 20180514
  33. SODIUM HYALURONATE [Concomitant]
     Active Substance: HYALURONATE SODIUM
     Dosage: 25 ML, QD
     Route: 014
     Dates: start: 20180705, end: 20180705
  34. AMBROXOL [Concomitant]
     Active Substance: AMBROXOL
     Indication: SJOGREN^S SYNDROME
     Dosage: 45 MG, QD
     Route: 048
     Dates: start: 20180720
  35. PILOCARPINE HCL [Concomitant]
     Active Substance: PILOCARPINE HYDROCHLORIDE
     Indication: SJOGREN^S SYNDROME
     Dosage: 5 MG, BID
     Route: 048
  36. TANDOSPIRONE CITRATE [Concomitant]
     Active Substance: TANDOSPIRONE CITRATE
     Indication: BIPOLAR DISORDER
     Dosage: 10 MG, TID
     Route: 048
  37. SULPIRIDE [Concomitant]
     Active Substance: SULPIRIDE
     Indication: BIPOLAR DISORDER
     Dosage: 50 MG, BID
     Route: 048
  38. LIOTHYRONINE [Concomitant]
     Active Substance: LIOTHYRONINE
     Indication: PROPHYLAXIS
     Dosage: 6.25 ?G, QD
     Route: 048
  39. BETAMETHASONE DIPROPIONATE. [Concomitant]
     Active Substance: BETAMETHASONE DIPROPIONATE
     Indication: ECZEMA
     Dosage: UNK UNK, PRN
     Route: 061

REACTIONS (1)
  - Lumbar spinal stenosis [Recovered/Resolved]

NARRATIVE: CASE EVENT DATE: 20180423
